FAERS Safety Report 20338027 (Version 1)
Quarter: 2022Q1

REPORT INFORMATION
  Report Type: Spontaneous
  Country: GB (occurrence: None)
  Receive Date: 20220115
  Receipt Date: 20220115
  Transmission Date: 20220423
  Serious: Yes (Hospitalization)
  Sender: FDA-Public Use
  Company Number: GB-ROCHE-3001611

PATIENT
  Age: 78 Year
  Sex: Male

DRUGS (1)
  1. TOCILIZUMAB [Suspect]
     Active Substance: TOCILIZUMAB
     Indication: Rheumatoid arthritis
     Dosage: FINAL INJECTION ON 9TH DECEMBER 2021.
     Route: 065

REACTIONS (2)
  - Cerebral haemorrhage [Unknown]
  - Ear infection [Unknown]

NARRATIVE: CASE EVENT DATE: 20211001
